FAERS Safety Report 15335638 (Version 1)
Quarter: 2018Q3

REPORT INFORMATION
  Report Type: Spontaneous
  Country: HR (occurrence: HR)
  Receive Date: 20180830
  Receipt Date: 20180830
  Transmission Date: 20181010
  Serious: Yes (Other)
  Sender: FDA-Public Use
  Company Number: PHHY2018HR083182

PATIENT
  Age: 11 Year
  Sex: Male

DRUGS (1)
  1. SANVAL [Suspect]
     Active Substance: ZOLPIDEM TARTRATE
     Indication: PRODUCT USED FOR UNKNOWN INDICATION
     Dosage: 4 ?G/L, UNK
     Route: 048
     Dates: start: 20180530, end: 20180530

REACTIONS (5)
  - Intentional overdose [Unknown]
  - Somnolence [Unknown]
  - Diplopia [Unknown]
  - Vomiting [Unknown]
  - Suicide attempt [Unknown]

NARRATIVE: CASE EVENT DATE: 20180530
